FAERS Safety Report 10773569 (Version 2)
Quarter: 2015Q3

REPORT INFORMATION
  Report Type: Report from Study
  Country: US (occurrence: US)
  Receive Date: 20150208
  Receipt Date: 20150904
  Transmission Date: 20151125
  Serious: Yes (Other)
  Sender: FDA-Public Use
  Company Number: US-ROCHE-1528790

PATIENT

DRUGS (6)
  1. FLUOROURACIL. [Suspect]
     Active Substance: FLUOROURACIL
     Indication: COLORECTAL CANCER
     Route: 065
  2. CALCIUM GLUCONATE. [Suspect]
     Active Substance: CALCIUM GLUCONATE
     Indication: PROPHYLAXIS
     Dosage: IN 100 ML OF 5% DEXTROSE OR NORMAL SALINE OVER 30 MIN BEFORE AND AFTER OXALIPLATIN
     Route: 042
  3. FOLINIC ACID [Suspect]
     Active Substance: LEUCOVORIN
     Indication: COLORECTAL CANCER
     Route: 065
  4. BEVACIZUMAB [Suspect]
     Active Substance: BEVACIZUMAB
     Indication: COLORECTAL CANCER METASTATIC
     Route: 065
  5. MAGNESIUM SULFATE. [Suspect]
     Active Substance: MAGNESIUM SULFATE
     Indication: PROPHYLAXIS
     Dosage: IN 100 ML OF 5% DEXTROSE OR NORMAL SALINE OVER 30 MIN BEFORE AND AFTER OXALIPLATIN
     Route: 042
  6. OXALIPLATIN. [Suspect]
     Active Substance: OXALIPLATIN
     Indication: COLORECTAL CANCER
     Dosage: 2 SCHEDULES OF FREQUENCY, IN CO COHORT GIVEN EVERY 2 WEEKS WHILE IN IO, PATIENTS ALTERNATED BETWEEN
     Route: 065

REACTIONS (15)
  - Asthenia [Unknown]
  - Neutropenia [Unknown]
  - Lymphopenia [Unknown]
  - Diarrhoea [Unknown]
  - Peripheral sensory neuropathy [Unknown]
  - Dehydration [Unknown]
  - Vomiting [Unknown]
  - Thrombocytopenia [Unknown]
  - Hypertension [Unknown]
  - Palmar-plantar erythrodysaesthesia syndrome [Unknown]
  - Leukopenia [Unknown]
  - Decreased appetite [Unknown]
  - Fatigue [Unknown]
  - Nausea [Unknown]
  - Peripheral motor neuropathy [Unknown]
